FAERS Safety Report 16901475 (Version 2)
Quarter: 2019Q4

REPORT INFORMATION
  Report Type: Spontaneous
  Country: FR (occurrence: FR)
  Receive Date: 20191009
  Receipt Date: 20191210
  Transmission Date: 20200122
  Serious: Yes (Life-Threatening, Hospitalization, Other)
  Sender: FDA-Public Use
  Company Number: FR-AUROBINDO-AUR-APL-2019-065270

PATIENT
  Age: 67 Year
  Sex: Female
  Weight: 82 kg

DRUGS (6)
  1. ELIQUIS [Concomitant]
     Active Substance: APIXABAN
     Indication: ATRIAL FIBRILLATION
     Dosage: 2 DOSAGE FORM, ONCE A DAY
     Route: 048
     Dates: start: 20190821
  2. BISOPROLOL [Suspect]
     Active Substance: BISOPROLOL
     Indication: CARDIAC FAILURE
     Dosage: 10 MILLIGRAM, ONCE A DAY
     Route: 048
     Dates: end: 20190823
  3. SPIRONOLACTONE. [Suspect]
     Active Substance: SPIRONOLACTONE
     Indication: CARDIAC FAILURE
     Dosage: 25 MILLIGRAM, ONCE A DAY
     Route: 048
     Dates: end: 20190823
  4. TRESIBA [Concomitant]
     Active Substance: INSULIN DEGLUDEC
     Indication: INSULIN-REQUIRING TYPE 2 DIABETES MELLITUS
     Dosage: 16 INTERNATIONAL UNIT, ONCE A DAY
     Route: 058
     Dates: start: 20190821
  5. FUROSEMIDE. [Suspect]
     Active Substance: FUROSEMIDE
     Indication: CARDIAC FAILURE
     Dosage: 125 MILLIGRAM, ONCE A DAY
     Route: 048
     Dates: end: 20190823
  6. ENTRESTO [Suspect]
     Active Substance: SACUBITRIL\VALSARTAN
     Indication: CARDIAC FAILURE
     Dosage: 2 DOSAGE FORM, ONCE A DAY
     Route: 048
     Dates: start: 20190821, end: 20190823

REACTIONS (4)
  - Diarrhoea [Recovered/Resolved]
  - Shock [Recovered/Resolved]
  - Acute kidney injury [Recovering/Resolving]
  - Hypotension [Recovered/Resolved]

NARRATIVE: CASE EVENT DATE: 20190822
